FAERS Safety Report 5275229-3 (Version None)
Quarter: 2007Q1

REPORT INFORMATION
  Report Type: 
  Country: None (occurrence: None)
  Receive Date: 20070320
  Receipt Date: 20070309
  Transmission Date: 20070707
  Serious: Yes (Hospitalization)
  Sender: FDA-Public Use
  Company Number: 153819ISR

PATIENT
  Age: 46 Year
  Sex: Male

DRUGS (8)
  1. CISPLATIN [Suspect]
     Indication: GASTRIC CANCER
     Dosage: 1 TOTAL (130 MG) INTRAVENOUS DRIP
     Route: 041
     Dates: start: 20070123, end: 20070123
  2. DOLASETRON MESILATE [Suspect]
     Indication: PROPHYLAXIS
     Dosage: 1 TOTAL (100 MG) INTRAVENOUS DRIP
     Route: 041
     Dates: start: 20070123, end: 20070123
  3. CAPECITABINE [Suspect]
     Indication: GASTRIC CANCER
     Dosage: 4 DF DOSAGE FORM (500 MG, 2 IN 1 D) ORAL
     Route: 048
     Dates: start: 20070123, end: 20070123
  4. DOCETAXEL [Suspect]
     Indication: GASTRIC CANCER
     Dosage: 1 TOTAL (130 MG) INTRAVENOUS DRIP
     Route: 041
     Dates: start: 20070123, end: 20070123
  5. DOCETAXEL [Suspect]
     Indication: GASTRIC CANCER
     Dosage: 1 TOTAL (130 MG) INTRAVENOUS DRIP
     Route: 041
     Dates: start: 20070123, end: 20070123
  6. DEXAMETHASONE [Suspect]
     Indication: PROPHYLAXIS
     Dosage: 1 TOTAL (8 MG), 1 TOTAL (130 MG) INTRAVENOUS DRIP
     Route: 041
     Dates: start: 20070123, end: 20070123
  7. DEXAMETHASONE [Suspect]
     Indication: PROPHYLAXIS
     Dosage: 1 TOTAL (8 MG), 1 TOTAL (130 MG) INTRAVENOUS DRIP
     Route: 041
     Dates: start: 20070123, end: 20070123
  8. APREPITANT [Concomitant]

REACTIONS (4)
  - INTESTINAL ISCHAEMIA [None]
  - LARGE INTESTINE PERFORATION [None]
  - NECROSIS ISCHAEMIC [None]
  - PERITONITIS [None]
